FAERS Safety Report 14202200 (Version 1)
Quarter: 2017Q4

REPORT INFORMATION
  Report Type: Report from Study
  Country: None (occurrence: US)
  Receive Date: 20171117
  Receipt Date: 20171117
  Transmission Date: 20180321
  Serious: Yes (Hospitalization)
  Sender: FDA-Public Use
  Company Number: US-ABBVIE-17P-163-2163802-00

PATIENT
  Age: 44 Year
  Sex: Male
  Weight: 127.12 kg

DRUGS (1)
  1. MAVYRET [Suspect]
     Active Substance: GLECAPREVIR\PIBRENTASVIR
     Indication: CHRONIC HEPATITIS C
     Dosage: AS DIRECTED
     Route: 048
     Dates: start: 20171025

REACTIONS (4)
  - Tendon rupture [Recovering/Resolving]
  - Laceration [Recovering/Resolving]
  - Pain in extremity [Recovering/Resolving]
  - Drug dose omission [Recovered/Resolved]

NARRATIVE: CASE EVENT DATE: 20171107
